FAERS Safety Report 16446081 (Version 1)
Quarter: 2019Q2

REPORT INFORMATION
  Report Type: Report from Study
  Country: US (occurrence: US)
  Receive Date: 20190618
  Receipt Date: 20190618
  Transmission Date: 20190711
  Serious: Yes (Other)
  Sender: FDA-Public Use
  Company Number: US-PUMA BIOTECHNOLOGY, LTD.-2019US005848

PATIENT

DRUGS (5)
  1. LOPERAMIDE [Concomitant]
     Active Substance: LOPERAMIDE
     Indication: DIARRHOEA
  2. NERLYNX [Suspect]
     Active Substance: NERATINIB
     Indication: HER-2 POSITIVE BREAST CANCER
     Dosage: UNK, DAILY
     Route: 048
     Dates: start: 20190330
  3. VIBERZI [Concomitant]
     Active Substance: ELUXADOLINE
     Indication: IRRITABLE BOWEL SYNDROME
  4. DEXILANT [Concomitant]
     Active Substance: DEXLANSOPRAZOLE
  5. ENTERAGAM [Concomitant]
     Active Substance: DIETARY SUPPLEMENT

REACTIONS (6)
  - Rash papular [Unknown]
  - Nausea [Unknown]
  - Diarrhoea [Unknown]
  - Stomatitis [Unknown]
  - Renal impairment [Unknown]
  - Skin fissures [Unknown]

NARRATIVE: CASE EVENT DATE: 2019
